FAERS Safety Report 6852503-8 (Version None)
Quarter: 2010Q3

REPORT INFORMATION
  Report Type: 
  Country: None (occurrence: None)
  Receive Date: 20100717
  Receipt Date: 20071110
  Transmission Date: 20110219
  Serious: Yes (Other)
  Sender: FDA-Public Use
  Company Number: US-PFIZER INC-2007097359

PATIENT
  Sex: Female
  Weight: 79.4 kg

DRUGS (3)
  1. CHANTIX [Suspect]
     Indication: EX-TOBACCO USER
     Route: 048
     Dates: start: 20070101, end: 20070101
  2. ATENOLOL [Concomitant]
     Indication: HYPERTENSION
  3. DIPHENHYDRAMINE [Concomitant]
     Indication: SLEEP DISORDER

REACTIONS (1)
  - BLOOD PRESSURE INCREASED [None]
